FAERS Safety Report 4562766-X (Version None)
Quarter: 2005Q1

REPORT INFORMATION
  Report Type: 
  Country: None (occurrence: None)
  Receive Date: 20050121
  Receipt Date: 20050104
  Transmission Date: 20050727
  Serious: Yes (Disabling)
  Sender: FDA-Public Use
  Company Number: 2004GB02958

PATIENT
  Age: 38 Year
  Sex: Male

DRUGS (4)
  1. QUETIAPINE [Suspect]
     Dosage: 25 MG BID PO
     Route: 048
     Dates: start: 20040101, end: 20041125
  2. HALOPERIDOL [Suspect]
     Dosage: 5 MG DAILY
  3. PROCYCLIDINE HYDROCHLORIDE 2MG TAB [Concomitant]
  4. INSULIN [Concomitant]

REACTIONS (2)
  - DIABETES MELLITUS INADEQUATE CONTROL [None]
  - DRUG INTERACTION [None]
